FAERS Safety Report 7341096-7 (Version None)
Quarter: 2011Q1

REPORT INFORMATION
  Report Type: 
  Country: None (occurrence: None)
  Receive Date: 20110309
  Receipt Date: 20110301
  Transmission Date: 20110831
  Serious: Yes (Hospitalization)
  Sender: FDA-Public Use
  Company Number: A0877909A

PATIENT
  Age: 56 Year
  Sex: Female
  Weight: 90.9 kg

DRUGS (4)
  1. ATENOLOL [Concomitant]
  2. PAXIL [Concomitant]
  3. AVANDIA [Suspect]
     Dosage: 4MG PER DAY
     Route: 048
     Dates: start: 20070326, end: 20070101
  4. DIOVAN HCT [Concomitant]
     Dates: end: 20070101

REACTIONS (3)
  - CARDIAC FAILURE CONGESTIVE [None]
  - ACUTE MYOCARDIAL INFARCTION [None]
  - RENAL FAILURE CHRONIC [None]
